FAERS Safety Report 7597629-9 (Version None)
Quarter: 2011Q3

REPORT INFORMATION
  Report Type: 
  Country: None (occurrence: None)
  Receive Date: 20110708
  Receipt Date: 20110623
  Transmission Date: 20111222
  Serious: Yes (Other)
  Sender: FDA-Public Use
  Company Number: FR-GENENTECH-320221

PATIENT
  Sex: Male
  Weight: 90 kg

DRUGS (2)
  1. LUCENTIS [Suspect]
     Indication: AGE-RELATED MACULAR DEGENERATION
  2. LUCENTIS [Suspect]
     Indication: CHOROIDAL NEOVASCULARISATION
     Dosage: 0.05 ML, UNKNOWN
     Route: 031

REACTIONS (4)
  - PARAESTHESIA [None]
  - MALAISE [None]
  - SYNCOPE [None]
  - HYPERHIDROSIS [None]
